FAERS Safety Report 8592902 (Version 2)
Quarter: 2013Q4

REPORT INFORMATION
  Report Type: Spontaneous
  Country: US (occurrence: US)
  Receive Date: 20120604
  Receipt Date: 20131204
  Transmission Date: 20140711
  Serious: No
  Sender: FDA-Public Use
  Company Number: US-ASTRAZENECA-2012SE34653

PATIENT
  Sex: 0

DRUGS (10)
  1. NEXIUM [Suspect]
     Route: 048
     Dates: start: 20100802
  2. TIZANIDINE HCL [Concomitant]
     Dates: start: 20100912
  3. OXCARBAZEPINE [Concomitant]
     Dates: start: 20100908
  4. METOPROLOL SUCCINATE [Concomitant]
     Dates: start: 20100709
  5. LEVOTHYROXINE SODIUM [Concomitant]
     Dates: start: 20100707
  6. MORPHINE SULFATE [Concomitant]
     Dates: start: 20100809
  7. SIMVASTATIN [Concomitant]
     Dates: start: 20100730
  8. GABAPENTIN [Concomitant]
     Dates: start: 20110513
  9. CALCIUM [Concomitant]
     Dates: start: 20110610
  10. VITAMIN D [Concomitant]

REACTIONS (2)
  - Osteoporosis [Unknown]
  - Multiple fractures [Unknown]
